FAERS Safety Report 18667796 (Version 1)
Quarter: 2020Q4

REPORT INFORMATION
  Report Type: Spontaneous
  Country: US (occurrence: US)
  Receive Date: 20201228
  Receipt Date: 20201228
  Transmission Date: 20210114
  Serious: Yes (Life-Threatening, Hospitalization, Other)
  Sender: FDA-Public Use
  Company Number: US-BIOVITRUM-2020US7929

PATIENT
  Age: 1 Year
  Sex: Male

DRUGS (27)
  1. ACETAMINOPHEN. [Concomitant]
     Active Substance: ACETAMINOPHEN
     Indication: PNEUMONIA
     Dosage: DOSE: UNK
     Route: 048
     Dates: start: 20200422, end: 20200423
  2. HAEMOPHILUS INFLUENZAE [Concomitant]
     Active Substance: HAEMOPHILUS INFLUENZAE TYPE B
     Indication: IMMUNISATION
     Dosage: DURATION: UNK DOSE: UNK
     Route: 030
     Dates: start: 20191212
  3. PREVNAR 13 [Concomitant]
     Active Substance: PNEUMOCOCCAL 13-VALENT CONJUGATE VACCINE
     Indication: IMMUNISATION
     Dosage: DURATION: UNK DOSE: UNK
     Route: 030
     Dates: start: 20200429
  4. ROTAVIRUS VACCINE [Concomitant]
     Active Substance: HUMAN ROTAVIRUS A
     Indication: IMMUNISATION
     Dosage: DURATION: UNK DOSE: UNK
     Route: 048
     Dates: start: 20200429
  5. PREDNISOLONE. [Concomitant]
     Active Substance: PREDNISOLONE
     Indication: PNEUMONIA
     Dosage: DOSE: UNK
     Route: 048
     Dates: start: 20200422, end: 20200422
  6. SILDENAFIL. [Concomitant]
     Active Substance: SILDENAFIL
     Indication: CARDIAC FAILURE CONGESTIVE
     Dosage: DURATION: UNK DOSE: UNK
     Route: 048
     Dates: start: 20200916
  7. DTAP [Concomitant]
     Active Substance: DIPHTHERIA AND TETANUS TOXOIDS AND ACELLULAR PERTUSSIS VACCINE ADSORBED
     Indication: IMMUNISATION
     Dosage: DURATION: UNK DOSE: UNK
     Route: 030
     Dates: start: 20191212
  8. PEDIARIX [Concomitant]
     Active Substance: DIPHTHERIA AND TETANUS TOXOIDS AND ACELLULAR PERTUSSIS AND HEPATITIS B AND INACTIVATED POLIOVIRUS VACCINE COMBINED
     Indication: IMMUNISATION
     Dosage: DURATION: UNK DOSE: UNK
     Route: 030
     Dates: start: 20200429
  9. SYNAGIS [Suspect]
     Active Substance: PALIVIZUMAB
     Indication: ANTIVIRAL PROPHYLAXIS
     Route: 030
     Dates: start: 20191122
  10. SYNAGIS [Suspect]
     Active Substance: PALIVIZUMAB
     Route: 030
     Dates: start: 20200224
  11. DIGOXIN. [Concomitant]
     Active Substance: DIGOXIN
     Indication: CARDIAC FAILURE CONGESTIVE
     Dosage: DURATION: UNK DOSE: UNK
     Route: 048
     Dates: start: 20191121
  12. LASIX [Concomitant]
     Active Substance: FUROSEMIDE
     Dosage: DURATION: UNK, DOSE: UNK
     Route: 048
     Dates: start: 20200916
  13. PROPRANOLOL [Concomitant]
     Active Substance: PROPRANOLOL HYDROCHLORIDE
     Indication: CARDIAC FAILURE CONGESTIVE
     Dosage: DURATION: UNK DOSE: UNK
     Route: 048
     Dates: start: 20200916
  14. SYNAGIS [Suspect]
     Active Substance: PALIVIZUMAB
     Route: 030
     Dates: start: 20201117
  15. DUONEB [Concomitant]
     Active Substance: ALBUTEROL SULFATE\IPRATROPIUM BROMIDE
     Indication: PNEUMONIA
     Dosage: DOSE: UNK
     Route: 065
     Dates: start: 20200422, end: 20200422
  16. CEFTRIAXONE. [Concomitant]
     Active Substance: CEFTRIAXONE
     Indication: PNEUMONIA
     Dosage: DOSE: UNK
     Route: 030
     Dates: start: 20200422, end: 20200422
  17. DIPHTHERIA TOXOID NOS [Concomitant]
     Active Substance: CORYNEBACTERIUM DIPHTHERIAE TOXOID ANTIGEN (FORMALDEHYDE INACTIVATED)
     Indication: IMMUNISATION
     Dosage: DURATION: UNK DOSE: UNK
     Route: 030
     Dates: start: 20200429
  18. SYNAGIS [Suspect]
     Active Substance: PALIVIZUMAB
     Route: 030
     Dates: start: 20200121
  19. SYNAGIS [Suspect]
     Active Substance: PALIVIZUMAB
     Route: 030
     Dates: start: 20191220
  20. ACETYLSALICYLIC ACID [Concomitant]
     Active Substance: ASPIRIN
     Indication: CARDIAC FAILURE CONGESTIVE
     Dosage: DURATION: UNK DOSE: UNK
     Route: 048
     Dates: start: 20191122
  21. AMOXICILLIN. [Concomitant]
     Active Substance: AMOXICILLIN
     Indication: PNEUMONIA
     Dosage: DOSE: UNK
     Route: 048
     Dates: start: 20200422, end: 20200503
  22. ACETAMINOPHEN. [Concomitant]
     Active Substance: ACETAMINOPHEN
     Indication: PULMONARY HYPERTENSION
  23. ROTAVIRUS VACCINE [Concomitant]
     Active Substance: HUMAN ROTAVIRUS A
     Indication: IMMUNISATION
     Dosage: DURATION: UNK DOSE: UNK
     Route: 030
     Dates: start: 20191212
  24. LASIX [Concomitant]
     Active Substance: FUROSEMIDE
     Indication: CARDIAC FAILURE CONGESTIVE
     Dosage: DOSE: UNK
     Route: 048
     Dates: start: 20191121, end: 20200121
  25. ASPIRIN. [Concomitant]
     Active Substance: ASPIRIN
     Indication: PYREXIA
     Dosage: DOSE: UNK
     Route: 048
     Dates: start: 20200422, end: 20200423
  26. DESITIN [Concomitant]
     Active Substance: ZINC OXIDE
     Indication: DERMATITIS DIAPER
     Dosage: DURATION: UNK DOSE: UNK
     Route: 061
     Dates: start: 20201120
  27. PNEUMOCOCCAL CONJUGATE VACCINE [Concomitant]
     Active Substance: PNEUMOCOCCAL VACCINE POLYVALENT
     Indication: IMMUNISATION
     Dosage: DURATION: UNK DOSE: UNK
     Route: 030
     Dates: start: 20191212

REACTIONS (1)
  - Pulmonary hypertension [Recovered/Resolved]

NARRATIVE: CASE EVENT DATE: 20201201
